FAERS Safety Report 4485275-5 (Version None)
Quarter: 2004Q4

REPORT INFORMATION
  Report Type: 
  Country: None (occurrence: None)
  Receive Date: 20041026
  Receipt Date: 20041021
  Transmission Date: 20050328
  Serious: Yes (Hospitalization)
  Sender: FDA-Public Use
  Company Number: 200413168EU

PATIENT
  Age: 72 Year
  Sex: Male

DRUGS (4)
  1. DOCETAXEL [Suspect]
     Indication: PROSTATE CANCER
     Route: 042
     Dates: start: 20041015, end: 20041015
  2. PREDNISONE [Suspect]
     Indication: PROSTATE CANCER
     Route: 048
     Dates: start: 20041014
  3. KYTRIL [Concomitant]
     Dates: start: 20041015
  4. DEXAMETHASONE [Concomitant]
     Dates: start: 20041014, end: 20041015

REACTIONS (1)
  - HYDRONEPHROSIS [None]
